FAERS Safety Report 11239775 (Version 1)
Quarter: 2015Q3

REPORT INFORMATION
  Report Type: Spontaneous
  Country: US (occurrence: US)
  Receive Date: 20150706
  Receipt Date: 20150706
  Transmission Date: 20151125
  Serious: Yes (Death, Other)
  Sender: FDA-Public Use
  Company Number: US-BAYER-2015-366735

PATIENT
  Age: 72 Year
  Sex: Female
  Weight: 76 kg

DRUGS (6)
  1. TELMISARTAN. [Concomitant]
     Active Substance: TELMISARTAN
     Dosage: UNK
     Dates: start: 2005
  2. MICARDIS PLUS [Concomitant]
     Active Substance: HYDROCHLOROTHIAZIDE\TELMISARTAN
     Indication: HYPERTENSION
     Dosage: UNK UNK, QD
     Dates: start: 2005
  3. SERTRALINE [Concomitant]
     Active Substance: SERTRALINE HYDROCHLORIDE
     Indication: DEPRESSION
     Dosage: UNK
     Route: 048
     Dates: start: 20140222
  4. METOCLOPRAMIDE. [Concomitant]
     Active Substance: METOCLOPRAMIDE
     Indication: NAUSEA
     Dosage: 10 MG, PRN
     Dates: start: 201406
  5. BAYER LOW DOSE [Suspect]
     Active Substance: ASPIRIN
     Indication: CARDIOVASCULAR EVENT PROPHYLAXIS
     Dosage: 100 MG, QD
     Route: 048
     Dates: start: 2005, end: 20140909
  6. FULVESTRANT [Suspect]
     Active Substance: FULVESTRANT
     Indication: BREAST CANCER METASTATIC
     Dosage: 500 MG, DAYS 1 AND 15 OF CYCLE 1, THEN ON DAY1 OF EACH SUBSEQUENT 28-DAY CYCLE
     Dates: start: 20140804, end: 20140909

REACTIONS (11)
  - Dyspnoea [None]
  - Unresponsive to stimuli [None]
  - Intraventricular haemorrhage [None]
  - Cerebral haemorrhage [Fatal]
  - Tumour haemorrhage [Fatal]
  - Metastases to liver [None]
  - Cerebrovascular arteriovenous malformation [Fatal]
  - Arteriovenous malformation [Unknown]
  - Breast cancer metastatic [Unknown]
  - Off label use [Unknown]
  - Hydrocephalus [None]

NARRATIVE: CASE EVENT DATE: 2005
